FAERS Safety Report 5283153-5 (Version None)
Quarter: 2007Q1

REPORT INFORMATION
  Report Type: 
  Country: None (occurrence: None)
  Receive Date: 20070327
  Receipt Date: 20070312
  Transmission Date: 20070707
  Serious: Yes (Other)
  Sender: FDA-Public Use
  Company Number: ST-2007-009575

PATIENT
  Age: 61 Year
  Sex: Male
  Weight: 58.5 kg

DRUGS (6)
  1. OLMETEC [Suspect]
     Indication: ESSENTIAL HYPERTENSION
     Dosage: 20 MG QD PO
     Route: 048
     Dates: start: 20051007, end: 20060510
  2. MEVALOTIN [Concomitant]
  3. FLUITRAN [Concomitant]
  4. NORVASC [Concomitant]
  5. ADALAT [Concomitant]
  6. GLYBURIDE [Concomitant]

REACTIONS (1)
  - RENAL IMPAIRMENT [None]
